FAERS Safety Report 19398911 (Version 1)
Quarter: 2021Q2

REPORT INFORMATION
  Report Type: Spontaneous
  Country: US (occurrence: US)
  Receive Date: 20210610
  Receipt Date: 20210610
  Transmission Date: 20210717
  Serious: Yes (Hospitalization)
  Sender: FDA-Public Use
  Company Number: None

PATIENT
  Age: 59 Year
  Sex: Female
  Weight: 93.8 kg

DRUGS (1)
  1. OLANZAPINE. [Suspect]
     Active Substance: OLANZAPINE
     Dates: end: 20210523

REACTIONS (5)
  - Condition aggravated [None]
  - Breast pain [None]
  - Nausea [None]
  - Pyrexia [None]
  - Mastitis [None]

NARRATIVE: CASE EVENT DATE: 20210601
